FAERS Safety Report 18465909 (Version 1)
Quarter: 2020Q4

REPORT INFORMATION
  Report Type: Spontaneous
  Country: CN (occurrence: CN)
  Receive Date: 20201105
  Receipt Date: 20201105
  Transmission Date: 20210114
  Serious: Yes (Hospitalization)
  Sender: FDA-Public Use
  Company Number: CN-PFIZER INC-2020423668

PATIENT
  Age: 50 Year
  Sex: Male
  Weight: 66 kg

DRUGS (4)
  1. EPERISONE HYDROCHLORIDE [Suspect]
     Active Substance: EPERISONE HYDROCHLORIDE
     Indication: MUSCLE RELAXANT THERAPY
     Dosage: 50 MG, 3X/DAY
     Route: 048
     Dates: start: 20201016, end: 20201016
  2. METHYCOBAL [Suspect]
     Active Substance: METHYLCOBALAMIN
     Indication: NUTRITIONAL SUPPLEMENTATION
     Dosage: 0.5 MG, 3X/DAY
     Route: 048
     Dates: start: 20201016, end: 20201016
  3. CELEBREX [Suspect]
     Active Substance: CELECOXIB
     Indication: INFLAMMATION
     Dosage: 0.2 G, 2X/DAY
     Route: 048
     Dates: start: 20201016, end: 20201016
  4. CELEBREX [Suspect]
     Active Substance: CELECOXIB
     Indication: PAIN

REACTIONS (5)
  - Urticaria [Recovering/Resolving]
  - Erythema [Recovering/Resolving]
  - Papule [Recovering/Resolving]
  - Drug eruption [Recovering/Resolving]
  - Pruritus [Recovering/Resolving]

NARRATIVE: CASE EVENT DATE: 20201016
